FAERS Safety Report 6471146-1 (Version None)
Quarter: 2009Q4

REPORT INFORMATION
  Report Type: 
  Country: None (occurrence: None)
  Receive Date: 20091203
  Receipt Date: 20081113
  Transmission Date: 20100525
  Serious: Yes (Hospitalization)
  Sender: FDA-Public Use
  Company Number: US-ELI_LILLY_AND_COMPANY-US200802004969

PATIENT
  Sex: Female
  Weight: 136.5 kg

DRUGS (4)
  1. ZYPREXA [Suspect]
     Dates: start: 20000101, end: 20010101
  2. RISPERDAL [Concomitant]
     Dates: start: 20000101
  3. DEPAKOTE [Concomitant]
     Dates: start: 20000101
  4. PAXIL [Concomitant]
     Dates: start: 20000101, end: 20030101

REACTIONS (6)
  - BLOOD GLUCOSE ABNORMAL [None]
  - DIABETES MELLITUS [None]
  - ENDOCRINE DISORDER [None]
  - PANCREATITIS [None]
  - RENAL FAILURE [None]
  - UTERINE CANCER [None]
